FAERS Safety Report 5821012-7 (Version None)
Quarter: 2008Q3

REPORT INFORMATION
  Report Type: 
  Country: None (occurrence: None)
  Receive Date: 20080724
  Receipt Date: 20080715
  Transmission Date: 20090109
  Serious: Yes (Other)
  Sender: FDA-Public Use
  Company Number: JP-NOVOPROD-277248

PATIENT
  Age: 34 Year
  Sex: Female
  Weight: 66 kg

DRUGS (4)
  1. NOVORAPID 30 MIX CHU FLEXPEN [Suspect]
     Indication: TYPE 2 DIABETES MELLITUS
     Dosage: 0+0+60 IU, UNK
     Route: 058
     Dates: start: 20070417
  2. HUMALOG [Suspect]
     Indication: DRUG USE FOR UNKNOWN INDICATION
     Dosage: 0+10+0 IU, UNK
     Route: 058
     Dates: start: 20070417
  3. LANTUS [Suspect]
     Indication: DRUG USE FOR UNKNOWN INDICATION
     Dosage: 70 IU, QD
     Route: 058
     Dates: start: 20070417
  4. NOVOLIN N [Concomitant]
     Indication: DRUG USE FOR UNKNOWN INDICATION
     Dosage: UNK, QD
     Route: 058

REACTIONS (3)
  - ANTI-INSULIN ANTIBODY INCREASED [None]
  - INJECTION SITE REACTION [None]
  - INSULIN RESISTANCE [None]
